FAERS Safety Report 17695439 (Version 7)
Quarter: 2025Q4

REPORT INFORMATION
  Report Type: Spontaneous
  Country: EU (occurrence: EU)
  Receive Date: 20200422
  Receipt Date: 20251212
  Transmission Date: 20260118
  Serious: Yes (Life-Threatening, Hospitalization, Other)
  Sender: AUROBINDO
  Company Number: EU-MLMSERVICE-20200410-2245564-1

PATIENT
  Age: 24 Year
  Sex: Male

DRUGS (26)
  1. BISOPROLOL [Suspect]
     Active Substance: BISOPROLOL
     Indication: Product used for unknown indication
     Dosage: 25 MILLIGRAM 1 TOTAL (BETWEEN 3:30 P.M. AND 7:30 P.M.
  2. DIAZEPAM [Suspect]
     Active Substance: DIAZEPAM
     Indication: Product used for unknown indication
     Dosage: 700 MILLIGRAM
     Route: 065
  3. DULOXETINE [Suspect]
     Active Substance: DULOXETINE
     Indication: Product used for unknown indication
     Dosage: 60 MILLIGRAM
     Route: 065
  4. DULOXETINE [Suspect]
     Active Substance: DULOXETINE
     Dosage: 26 DOSAGE FORM 1 TOTAL
     Route: 065
  5. FLECAINIDE [Interacting]
     Active Substance: FLECAINIDE
     Indication: Product used for unknown indication
     Dosage: 4 GRAM, 1 TOTAL (BETWEEN 3:30 P.M. AND 7:30 P.M.
  6. FLECAINIDE [Interacting]
     Active Substance: FLECAINIDE
     Dosage: INGESTED IN A LARGE QUANTITY
  7. ACETAMINOPHEN [Interacting]
     Active Substance: ACETAMINOPHEN
     Indication: Product used for unknown indication
     Dosage: 21 GRAM, 1 TOTAL (BETWEEN 3:30 P.M. AND 7:30 P.M.
  8. ACETAMINOPHEN [Interacting]
     Active Substance: ACETAMINOPHEN
     Dosage: 2 GRAM ONCE TOTAL
  9. FLUMAZENIL [Suspect]
     Active Substance: FLUMAZENIL
     Indication: Sedation
     Dosage: UNK
  10. ATROPINE [Suspect]
     Active Substance: ATROPINE
     Indication: Product used for unknown indication
     Dosage: UNK
     Route: 065
  11. CYMBALTA [Suspect]
     Active Substance: DULOXETINE HYDROCHLORIDE
     Indication: Antidepressant therapy
     Dosage: 1 DOSAGE FORM, ONCE A DAY (IN THE MORNING)
     Route: 065
  12. CYMBALTA [Suspect]
     Active Substance: DULOXETINE HYDROCHLORIDE
     Dosage: 26 DOSAGE FORM, 1 TOTAL (BETWEEN 3:30 P.M. AND 7:30 P.M
  13. DOBUTAMINE [Suspect]
     Active Substance: DOBUTAMINE HYDROCHLORIDE
     Indication: Product used for unknown indication
     Dosage: UNK
     Route: 065
  14. MIDAZOLAM [Suspect]
     Active Substance: MIDAZOLAM
     Indication: Sedation
     Dosage: UNK
     Route: 065
  15. ACETAMINOPHEN\BELLADONNA LEAF\CAFFEINE\OPIUM [Suspect]
     Active Substance: ACETAMINOPHEN\BELLADONNA LEAF\CAFFEINE\OPIUM
     Indication: Product used for unknown indication
     Dosage: 16 DOSAGE FORM, 1 TOTAL (BETWEEN 3:30 P.M. AND 7:30 P.M
  16. NOREPINEPHRINE [Suspect]
     Active Substance: NOREPINEPHRINE
     Indication: Product used for unknown indication
     Dosage: 0.5 MILLIGRAM PER HOUR
     Route: 065
  17. SUFENTANIL [Suspect]
     Active Substance: SUFENTANIL
     Indication: Sedation
     Dosage: UNK
     Route: 065
  18. VALIUM [Suspect]
     Active Substance: DIAZEPAM
     Indication: Anxiolytic therapy
     Dosage: 700 MILLIGRAM, 1 TOTAL (BETWEEN 3:30 P.M. AND 7:30 P.M
  19. VALIUM [Suspect]
     Active Substance: DIAZEPAM
     Dosage: UNK ( PROGRESSIVE DECREASE)
     Route: 065
  20. VALIUM [Suspect]
     Active Substance: DIAZEPAM
     Dosage: 10 MILLIGRAM, ONCE A DAY (WITH CURRENT DOSE OF 10 MG/D)
     Route: 065
  21. VOGALENE [Suspect]
     Active Substance: METOPIMAZINE
     Indication: Product used for unknown indication
     Dosage: 20 DOSAGE FORM, 1 TOTAL (BETWEEN 3:30 P.M. AND 7:30 P.M
  22. VOGALENE [Suspect]
     Active Substance: METOPIMAZINE
     Dosage: 20 DOSAGE FORM, 1 TOTAL (BETWEEN 3:30 P.M. AND 7:30 P.M
     Route: 065
  23. MIDAZOLAM [Suspect]
     Active Substance: MIDAZOLAM
     Indication: Sedation
     Dosage: UNK
     Route: 065
  24. NOREPINEPHRINE BITARTRATE [Suspect]
     Active Substance: NOREPINEPHRINE BITARTRATE
     Indication: Product used for unknown indication
     Dosage: 0.5 MILLIGRAM, EVERY HOUR
     Route: 065
  25. ALCOHOL [Suspect]
     Active Substance: ALCOHOL
     Indication: Product used for unknown indication
     Dosage: UNK
     Route: 065
  26. SUCCINYLCHOLINE [Concomitant]
     Active Substance: SUCCINYLCHOLINE
     Indication: Product used for unknown indication
     Dosage: UNK
     Route: 065

REACTIONS (32)
  - Respiratory acidosis [Recovered/Resolved]
  - Pneumonitis aspiration [Recovering/Resolving]
  - Coma [Recovered/Resolved]
  - Electrocardiogram PR prolongation [Recovered/Resolved]
  - Bezoar [Recovered/Resolved]
  - Ventricular tachycardia [Recovered/Resolved]
  - Electrocardiogram QT prolonged [Recovered/Resolved]
  - Respiration abnormal [Recovered/Resolved]
  - Bradycardia [Recovered/Resolved]
  - Hypertonia [Recovered/Resolved]
  - Atrioventricular block first degree [Recovered/Resolved]
  - Pupillary disorder [Recovered/Resolved]
  - Reflexes abnormal [Recovered/Resolved]
  - Bundle branch block right [Recovered/Resolved]
  - Atrioventricular block complete [Recovered/Resolved]
  - Ejection fraction decreased [Recovered/Resolved]
  - Hypotension [Recovered/Resolved]
  - Tremor [Recovered/Resolved]
  - Hypothermia [Recovered/Resolved]
  - Electrocardiogram QRS complex prolonged [Recovered/Resolved]
  - Intentional overdose [Recovering/Resolving]
  - Toxicity to various agents [Recovering/Resolving]
  - Atrioventricular block [Recovered/Resolved]
  - Breath sounds abnormal [Recovered/Resolved]
  - Suicide attempt [Unknown]
  - Membrane stabilising effect [Unknown]
  - Loss of consciousness [Recovering/Resolving]
  - Agitation [Unknown]
  - Muscle spasticity [Unknown]
  - Drug interaction [Unknown]
  - Overdose [Unknown]
  - Drug level increased [Unknown]
